FAERS Safety Report 10082963 (Version 2)
Quarter: 2014Q2

REPORT INFORMATION
  Report Type: Spontaneous
  Country: CL (occurrence: CL)
  Receive Date: 20140417
  Receipt Date: 20140508
  Transmission Date: 20141212
  Serious: Yes (Other)
  Sender: FDA-Public Use
  Company Number: CL-PFIZER INC-2014104974

PATIENT
  Age: 90 Year
  Sex: Female

DRUGS (3)
  1. XALATAN [Suspect]
     Indication: GLAUCOMA
     Dosage: 1 DROP, 1X/DAY
     Route: 047
     Dates: start: 2009
  2. GLAUCOTENSIL [Concomitant]
     Dosage: UNK
  3. BRIMONIDINE [Concomitant]

REACTIONS (2)
  - Hearing impaired [Not Recovered/Not Resolved]
  - Cataract [Unknown]
